FAERS Safety Report 23797961 (Version 3)
Quarter: 2024Q2

REPORT INFORMATION
  Report Type: Spontaneous
  Country: BE (occurrence: BE)
  Receive Date: 20240430
  Receipt Date: 20240605
  Transmission Date: 20240716
  Serious: Yes (Hospitalization)
  Sender: FDA-Public Use
  Company Number: BE-GILEAD-2024-0668536

PATIENT
  Sex: Female
  Weight: 50.5 kg

DRUGS (38)
  1. PEMETREXED [Suspect]
     Active Substance: PEMETREXED
     Indication: Non-small cell lung cancer metastatic
     Dosage: 750 MILLIGRAM (750 MG)
     Route: 042
     Dates: start: 20240111, end: 20240111
  2. PEMETREXED [Suspect]
     Active Substance: PEMETREXED
     Dosage: 750 MILLIGRAM (750 MG)
     Route: 042
     Dates: start: 20240111, end: 20240221
  3. PEMETREXED [Suspect]
     Active Substance: PEMETREXED
     Dosage: 750 MILLIGRAM (750 MG)
     Route: 042
     Dates: start: 20240131, end: 20240131
  4. PEMETREXED [Suspect]
     Active Substance: PEMETREXED
     Dosage: 750 MILLIGRAM (750 MG)
     Route: 042
     Dates: start: 20240221, end: 20240221
  5. PEMETREXED [Suspect]
     Active Substance: PEMETREXED
     Dosage: 750 MILLIGRAM (750 MG)
     Route: 042
     Dates: start: 20240320
  6. CISPLATIN [Suspect]
     Active Substance: CISPLATIN
     Indication: Non-small cell lung cancer metastatic
     Dosage: 110 MILLIGRAM (110 MG)
     Route: 042
     Dates: start: 20240111, end: 20240111
  7. CISPLATIN [Suspect]
     Active Substance: CISPLATIN
     Dosage: 110 MILLIGRAM (110 MG)
     Route: 042
     Dates: start: 20240111, end: 20240221
  8. CISPLATIN [Suspect]
     Active Substance: CISPLATIN
     Dosage: 110 MILLIGRAM (110 MG)
     Route: 042
     Dates: start: 20240131, end: 20240131
  9. CISPLATIN [Suspect]
     Active Substance: CISPLATIN
     Dosage: 110 MILLIGRAM (110 MG)
     Route: 042
     Dates: start: 20240221, end: 20240221
  10. CISPLATIN [Suspect]
     Active Substance: CISPLATIN
     Dosage: 83 MILLIGRAM
     Route: 042
     Dates: start: 20240320, end: 20240320
  11. ZIMBERELIMAB [Suspect]
     Active Substance: ZIMBERELIMAB
     Indication: Non-small cell lung cancer metastatic
     Dosage: 360 MILLIGRAM (360 MG)
     Route: 042
     Dates: start: 20240111
  12. ZIMBERELIMAB [Suspect]
     Active Substance: ZIMBERELIMAB
     Dosage: 360 MILLIGRAM (360 MG)
     Route: 042
     Dates: start: 20240131, end: 20240131
  13. ZIMBERELIMAB [Suspect]
     Active Substance: ZIMBERELIMAB
     Dosage: 360 MILLIGRAM (360 MG)
     Route: 042
     Dates: start: 20240221, end: 20240221
  14. ZIMBERELIMAB [Suspect]
     Active Substance: ZIMBERELIMAB
     Dosage: 360 MILLIGRAM (360 MG)
     Route: 042
     Dates: start: 20240320
  15. IBUPROFEN [Concomitant]
     Active Substance: IBUPROFEN
     Indication: Chest pain
     Dosage: UNK
     Route: 048
     Dates: start: 20231215
  16. VENTOLIN [Concomitant]
     Active Substance: ALBUTEROL SULFATE
     Indication: Dyspnoea
     Dosage: UNK
     Dates: start: 20240221
  17. VITAMIN B12 [Concomitant]
     Active Substance: CYANOCOBALAMIN
     Indication: Prophylaxis
     Dosage: UNK
     Route: 030
     Dates: start: 20231220
  18. OLODATEROL HYDROCHLORIDE\TIOTROPIUM BROMIDE MONOHYDRATE [Concomitant]
     Active Substance: OLODATEROL HYDROCHLORIDE\TIOTROPIUM BROMIDE MONOHYDRATE
     Indication: Dyspnoea
     Dosage: UNK
     Route: 048
     Dates: start: 20240117
  19. DEXAMETHASONE [Concomitant]
     Active Substance: DEXAMETHASONE
     Indication: Prophylaxis
     Dosage: UNK
     Route: 048
     Dates: start: 20240109
  20. TRAMADOL HYDROCHLORIDE [Concomitant]
     Active Substance: TRAMADOL HYDROCHLORIDE
     Indication: Chest pain
     Dosage: UNK
     Route: 048
     Dates: start: 20231226
  21. TRAMADOL HYDROCHLORIDE [Concomitant]
     Active Substance: TRAMADOL HYDROCHLORIDE
     Indication: Chest pain
     Dosage: UNK
     Route: 048
     Dates: start: 20240117
  22. XANAX [Concomitant]
     Active Substance: ALPRAZOLAM
     Indication: Depression
     Dosage: UNK
     Route: 048
     Dates: start: 20240117
  23. INNOHEP [Concomitant]
     Active Substance: TINZAPARIN SODIUM
     Indication: Pulmonary embolism
     Dosage: UNK
     Route: 058
     Dates: start: 20240219
  24. INNOHEP [Concomitant]
     Active Substance: TINZAPARIN SODIUM
     Dosage: UNK
     Route: 058
     Dates: start: 20240313
  25. ZOLPIDEM [Concomitant]
     Active Substance: ZOLPIDEM TARTRATE
     Indication: Prophylaxis
     Dosage: UNK
     Route: 048
     Dates: start: 20231226
  26. DAFALGAN [Concomitant]
     Active Substance: ACETAMINOPHEN
     Indication: Chest pain
     Dosage: UNK
     Route: 048
     Dates: start: 20231221
  27. SOLU-MEDROL [Concomitant]
     Active Substance: METHYLPREDNISOLONE SODIUM SUCCINATE
     Indication: Prophylaxis
     Dosage: UNK
     Route: 042
     Dates: start: 20240111
  28. FOLIC ACID [Concomitant]
     Active Substance: FOLIC ACID
     Indication: Prophylaxis
     Dosage: UNK
     Route: 048
     Dates: start: 20231220
  29. BECLOMETHASONE DIPROPIONATE\FORMOTEROL FUMARATE [Concomitant]
     Active Substance: BECLOMETHASONE DIPROPIONATE\FORMOTEROL FUMARATE
     Indication: Dyspnoea
     Dosage: UNK
     Dates: start: 20231101
  30. PRIMPERAN [Concomitant]
     Active Substance: METOCLOPRAMIDE HYDROCHLORIDE
     Indication: Prophylaxis
     Dosage: UNK
     Route: 048
     Dates: start: 20231226
  31. POLYETHYLENE GLYCOLS [Concomitant]
     Active Substance: POLYETHYLENE GLYCOLS
     Indication: Prophylaxis
     Dosage: UNK
     Route: 048
     Dates: start: 20231214
  32. AKYNZEO [Concomitant]
     Indication: Prophylaxis
     Dosage: UNK
     Route: 048
     Dates: start: 20240111
  33. ALIZAPRIDE HYDROCHLORIDE [Concomitant]
     Active Substance: ALIZAPRIDE HYDROCHLORIDE
     Indication: Prophylaxis
     Dosage: UNK
     Route: 048
     Dates: start: 20240111
  34. PANTOPRAZOLE [Concomitant]
     Active Substance: PANTOPRAZOLE
     Indication: Prophylaxis
     Dosage: UNK
     Route: 048
     Dates: start: 20231128
  35. ESCITALOPRAM [Concomitant]
     Active Substance: ESCITALOPRAM OXALATE
     Indication: Depression
     Dosage: UNK
     Route: 048
     Dates: start: 20231111
  36. OXYCODONE HYDROCHLORIDE [Concomitant]
     Active Substance: OXYCODONE HYDROCHLORIDE
     Indication: Chest pain
     Dosage: UNK
     Route: 048
     Dates: start: 20240121
  37. KALIUM-R [Concomitant]
     Indication: Hypokalaemia
     Dosage: UNK
     Route: 048
     Dates: start: 20240413
  38. ARANESP [Concomitant]
     Active Substance: DARBEPOETIN ALFA
     Indication: Anaemia
     Dosage: UNK
     Route: 058
     Dates: start: 20240313

REACTIONS (2)
  - General physical condition abnormal [Not Recovered/Not Resolved]
  - Atelectasis [Not Recovered/Not Resolved]

NARRATIVE: CASE EVENT DATE: 20240122
